FAERS Safety Report 11916252 (Version 1)
Quarter: 2016Q1

REPORT INFORMATION
  Report Type: Spontaneous
  Country: US (occurrence: None)
  Receive Date: 20160112
  Receipt Date: 20160112
  Transmission Date: 20160526
  Serious: No
  Sender: FDA-Public Use
  Company Number: DL2015-1278

PATIENT
  Age: 23 Year
  Sex: Female

DRUGS (4)
  1. AZITHROMYCIN ANHYDROUS. [Concomitant]
     Active Substance: AZITHROMYCIN ANHYDROUS
  2. MIFEPRISTONE TABLETS, 200 MG (DANCO LABS) [Suspect]
     Active Substance: MIFEPRISTONE
     Indication: ABORTION INDUCED
     Route: 048
     Dates: start: 20151022
  3. FLAGYL [Concomitant]
     Active Substance: METRONIDAZOLE\METRONIDAZOLE HYDROCHLORIDE
  4. MISOPROSTOL TABLETS, 200 MCG [Suspect]
     Active Substance: MISOPROSTOL
     Route: 002
     Dates: start: 20151023

REACTIONS (1)
  - Abortion incomplete [None]

NARRATIVE: CASE EVENT DATE: 20151030
